FAERS Safety Report 7658602-5 (Version None)
Quarter: 2011Q3

REPORT INFORMATION
  Report Type: 
  Country: None (occurrence: None)
  Receive Date: 20110805
  Receipt Date: 20110726
  Transmission Date: 20111222
  Serious: Yes (Hospitalization, Other)
  Sender: FDA-Public Use
  Company Number: JP-BRISTOL-MYERS SQUIBB COMPANY-15925316

PATIENT
  Age: 44 Year
  Sex: Female

DRUGS (2)
  1. ABILIFY [Suspect]
     Indication: SCHIZOPHRENIA, PARANOID TYPE
     Route: 048
  2. PEROSPIRONE [Concomitant]

REACTIONS (6)
  - HYPERACUSIS [None]
  - DELUSION [None]
  - TACITURNITY [None]
  - FATIGUE [None]
  - INSOMNIA [None]
  - DYSTONIA [None]
